FAERS Safety Report 4317896-4 (Version None)
Quarter: 2004Q1

REPORT INFORMATION
  Report Type: 
  Country: None (occurrence: None)
  Receive Date: 20040316
  Receipt Date: 20031125
  Transmission Date: 20041129
  Serious: Yes (Hospitalization)
  Sender: FDA-Public Use
  Company Number: US-ROCHE-352496

PATIENT
  Age: 50 Year
  Sex: Male
  Weight: 95.3 kg

DRUGS (5)
  1. PEG-INTERFERON ALFA 2A (RO 25-8310) [Suspect]
     Route: 058
     Dates: start: 20031013, end: 20031121
  2. BLINDED THYMOSIN ALFA 1 [Suspect]
     Route: 065
     Dates: start: 20031014, end: 20031122
  3. LEVOXYL [Concomitant]
     Route: 048
     Dates: start: 20000415
  4. VICODIN [Concomitant]
     Route: 048
     Dates: start: 20031003, end: 20031010
  5. ULTRAM [Concomitant]
     Route: 048
     Dates: start: 20031003, end: 20031008

REACTIONS (2)
  - CONVULSION [None]
  - LOSS OF CONSCIOUSNESS [None]
